FAERS Safety Report 24957719 (Version 1)
Quarter: 2025Q1

REPORT INFORMATION
  Report Type: Spontaneous
  Country: GB (occurrence: GB)
  Receive Date: 20250212
  Receipt Date: 20250212
  Transmission Date: 20250408
  Serious: Yes (Other)
  Sender: TEVA
  Company Number: GB-MHRA-TPP12147028C20886714YC1738329453439

PATIENT
  Age: 20 Year
  Sex: Male
  Weight: 55 kg

DRUGS (3)
  1. NAPROXEN [Suspect]
     Active Substance: NAPROXEN
     Indication: Ill-defined disorder
     Route: 065
     Dates: start: 20250117
  2. LANSOPRAZOLE [Concomitant]
     Active Substance: LANSOPRAZOLE
     Indication: Ill-defined disorder
     Dosage: 1 CAPSULE
     Route: 065
     Dates: start: 20250117
  3. MIRTAZAPINE [Concomitant]
     Active Substance: MIRTAZAPINE
     Indication: Ill-defined disorder
     Route: 065
     Dates: start: 20241113

REACTIONS (1)
  - Oral mucosal blistering [Recovered/Resolved]
